FAERS Safety Report 7653921-0 (Version None)
Quarter: 2011Q3

REPORT INFORMATION
  Report Type: 
  Country: None (occurrence: None)
  Receive Date: 20110803
  Receipt Date: 20110727
  Transmission Date: 20111222
  Serious: Yes (Other)
  Sender: FDA-Public Use
  Company Number: US-ELI_LILLY_AND_COMPANY-US201008003008

PATIENT
  Sex: Female

DRUGS (11)
  1. CYMBALTA [Concomitant]
  2. ALDACTONE [Concomitant]
  3. LIPITOR [Concomitant]
  4. LISINOPRIL [Concomitant]
  5. EVISTA                                  /SCH/ [Concomitant]
  6. AVANDIA [Concomitant]
  7. BYETTA [Suspect]
     Indication: TYPE 2 DIABETES MELLITUS
     Dates: start: 20061127
  8. HUMULIN N [Concomitant]
  9. PRILOSEC [Concomitant]
  10. ASPIRIN [Concomitant]
  11. GLUCOPHAGE [Concomitant]

REACTIONS (4)
  - RENAL FAILURE CHRONIC [None]
  - RENAL FAILURE [None]
  - GLOMERULAR FILTRATION RATE DECREASED [None]
  - OFF LABEL USE [None]
